FAERS Safety Report 7514772-0 (Version None)
Quarter: 2011Q2

REPORT INFORMATION
  Report Type: 
  Country: None (occurrence: None)
  Receive Date: 20110526
  Receipt Date: 20110526
  Transmission Date: 20111010
  Serious: No
  Sender: FDA-Public Use
  Company Number: None

PATIENT
  Sex: Male

DRUGS (1)
  1. LOVENOX [Suspect]
     Indication: THROMBOSIS PROPHYLAXIS
     Dosage: 40MG DAILY SUBCUTANEOUSLY
     Route: 058

REACTIONS (2)
  - INJURY ASSOCIATED WITH DEVICE [None]
  - DEVICE ISSUE [None]
